FAERS Safety Report 8567397-2 (Version None)
Quarter: 2012Q3

REPORT INFORMATION
  Report Type: 
  Country: None (occurrence: None)
  Receive Date: 20120803
  Receipt Date: 20120705
  Transmission Date: 20120928
  Serious: No
  Sender: FDA-Public Use
  Company Number: US-ABBOTT-03P-163-0387698-00

PATIENT
  Sex: Male
  Weight: 72.64 kg

DRUGS (7)
  1. LIPITOR [Concomitant]
     Indication: BLOOD CHOLESTEROL INCREASED
     Dates: start: 20030701
  2. NIASPAN [Suspect]
     Indication: CORONARY ARTERY DISEASE
  3. CRESTOR [Concomitant]
     Route: 048
  4. UNKNOWN BETA BLOCKER [Concomitant]
     Route: 048
  5. NIASPAN [Suspect]
     Indication: BLOOD CHOLESTEROL ABNORMAL
     Route: 048
     Dates: start: 20030101, end: 20040101
  6. ACCUPRIL [Concomitant]
     Indication: STENT PLACEMENT
     Route: 047
     Dates: start: 20030701
  7. ACETYLSALICYLIC ACID SRT [Concomitant]
     Indication: FLUSHING

REACTIONS (4)
  - PRURITUS [None]
  - PARAESTHESIA [None]
  - SKIN BURNING SENSATION [None]
  - FLUSHING [None]
